FAERS Safety Report 9696968 (Version 3)
Quarter: 2013Q4

REPORT INFORMATION
  Report Type: Report from Study
  Country: GR (occurrence: GR)
  Receive Date: 20131119
  Receipt Date: 20131211
  Transmission Date: 20140711
  Serious: Yes (Other)
  Sender: FDA-Public Use
  Company Number: GR-ROCHE-1302964

PATIENT
  Age: 54 Year
  Sex: Female
  Weight: 67 kg

DRUGS (4)
  1. RHUPH20/TRASTUZUMAB [Suspect]
     Indication: HER-2 POSITIVE BREAST CANCER
     Dosage: LAST DOSE PRIOR TO SAE: 07/AUG/2013
     Route: 058
     Dates: start: 20121116
  2. LETROZOLE [Concomitant]
     Route: 065
     Dates: start: 20130408
  3. CRESTOR [Concomitant]
     Route: 065
     Dates: start: 2012, end: 20130910
  4. GLAVERAL [Concomitant]
     Route: 065
     Dates: start: 20130408, end: 20130820

REACTIONS (1)
  - Carotid sinus syndrome [Recovered/Resolved]
